FAERS Safety Report 6742698-9 (Version None)
Quarter: 2010Q2

REPORT INFORMATION
  Report Type: 
  Country: None (occurrence: None)
  Receive Date: 20100526
  Receipt Date: 20090526
  Transmission Date: 20101027
  Serious: No
  Sender: FDA-Public Use
  Company Number: US-ABBOTT-09P-163-0576151-00

PATIENT
  Sex: Male
  Weight: 70.37 kg

DRUGS (2)
  1. ZEMPLAR [Suspect]
     Indication: RENAL DISORDER
     Route: 048
     Dates: start: 20090501
  2. AVAPRO [Suspect]
     Indication: HYPERTENSION
     Route: 048

REACTIONS (1)
  - SOMNOLENCE [None]
